FAERS Safety Report 6330045-6 (Version None)
Quarter: 2009Q3

REPORT INFORMATION
  Report Type: 
  Country: None (occurrence: None)
  Receive Date: 20090825
  Receipt Date: 20090817
  Transmission Date: 20100115
  Serious: Yes (Death, Hospitalization)
  Sender: FDA-Public Use
  Company Number: 2009AL003728

PATIENT
  Age: 49 Year
  Sex: Male

DRUGS (10)
  1. DIGOXIN [Suspect]
     Dosage: 0.25MG, PO
     Route: 048
  2. FUROSEMIDE [Concomitant]
  3. CEPHALEXIN [Concomitant]
  4. HYDROCODONE [Concomitant]
  5. ALTACE [Concomitant]
  6. KLOR-CON [Concomitant]
  7. HYDROCHLOROTHIAZIDE [Concomitant]
  8. ASCENSIA [Concomitant]
  9. COREG [Concomitant]
  10. LUNESTA [Concomitant]

REACTIONS (12)
  - ACUTE CORONARY SYNDROME [None]
  - ASTHENIA [None]
  - CARDIAC ARREST [None]
  - CARDIAC FAILURE [None]
  - CARDIOMYOPATHY [None]
  - CONDITION AGGRAVATED [None]
  - DYSPNOEA [None]
  - ELECTROMECHANICAL DISSOCIATION [None]
  - FEELING ABNORMAL [None]
  - SWELLING [None]
  - VENTRICULAR TACHYCARDIA [None]
  - WEIGHT INCREASED [None]
